FAERS Safety Report 23746664 (Version 1)
Quarter: 2024Q2

REPORT INFORMATION
  Report Type: Spontaneous
  Country: CN (occurrence: CN)
  Receive Date: 20240416
  Receipt Date: 20240416
  Transmission Date: 20240716
  Serious: Yes (Other)
  Sender: FDA-Public Use
  Company Number: CN-AUROBINDO-AUR-APL-2024-016636

PATIENT
  Age: 32 Year
  Sex: Female

DRUGS (11)
  1. SILDENAFIL [Suspect]
     Active Substance: SILDENAFIL
     Indication: Coxsackie myocarditis
     Dosage: UNK
     Route: 065
  2. ACYCLOVIR [Suspect]
     Active Substance: ACYCLOVIR
     Indication: Coxsackie myocarditis
     Dosage: UNK
     Route: 065
  3. ADEFOVIR [Suspect]
     Active Substance: ADEFOVIR
     Indication: Coxsackie myocarditis
     Dosage: UNK
     Route: 065
  4. ENTECAVIR [Suspect]
     Active Substance: ENTECAVIR
     Indication: Coxsackie myocarditis
     Dosage: UNK
     Route: 065
  5. LEVOSIMENDAN [Suspect]
     Active Substance: LEVOSIMENDAN
     Indication: Coxsackie myocarditis
     Dosage: UNK
     Route: 065
  6. TRIMETAZIDINE [Suspect]
     Active Substance: TRIMETAZIDINE
     Indication: Coxsackie myocarditis
     Dosage: UNK
     Route: 065
  7. MOXIFLOXACIN [Suspect]
     Active Substance: MOXIFLOXACIN
     Indication: Pneumonia
     Dosage: UNK
     Route: 065
  8. METHYLPREDNISOLONE [Suspect]
     Active Substance: METHYLPREDNISOLONE
     Indication: Cardiogenic shock
     Dosage: UNK
     Route: 065
  9. GLUTATHIONE [Suspect]
     Active Substance: GLUTATHIONE
     Indication: Prophylaxis
     Dosage: UNK
     Route: 065
  10. UNSPECIFIED INGREDIENT [Suspect]
     Active Substance: UNSPECIFIED INGREDIENT
     Indication: Anticoagulant therapy
     Dosage: UNK
     Route: 065
  11. PANTOPRAZOLE [Concomitant]
     Active Substance: PANTOPRAZOLE
     Indication: Hyperchlorhydria
     Dosage: UNK
     Route: 065

REACTIONS (1)
  - Drug ineffective [Unknown]
